FAERS Safety Report 13688331 (Version 3)
Quarter: 2017Q3

REPORT INFORMATION
  Report Type: Report from Study
  Country: US (occurrence: US)
  Receive Date: 20170626
  Receipt Date: 20170717
  Transmission Date: 20171127
  Serious: No
  Sender: FDA-Public Use
  Company Number: US-AMGEN-USASL2017094717

PATIENT
  Sex: Female

DRUGS (1)
  1. ENBREL [Suspect]
     Active Substance: ETANERCEPT
     Indication: RHEUMATOID ARTHRITIS
     Dosage: 50 MG, QWK
     Route: 065

REACTIONS (6)
  - Flatulence [Recovered/Resolved]
  - Eructation [Unknown]
  - Diarrhoea [Unknown]
  - Injection site swelling [Unknown]
  - Feeling abnormal [Recovered/Resolved]
  - Injection site erythema [Unknown]
